FAERS Safety Report 15658939 (Version 2)
Quarter: 2018Q4

REPORT INFORMATION
  Report Type: Report from Study
  Country: None (occurrence: PT)
  Receive Date: 20181126
  Receipt Date: 20181217
  Transmission Date: 20190205
  Serious: Yes (Hospitalization)
  Sender: FDA-Public Use
  Company Number: PT-ABBVIE-18K-130-2566987-00

PATIENT
  Age: 57 Year
  Sex: Male

DRUGS (5)
  1. HUMIRA [Suspect]
     Active Substance: ADALIMUMAB
     Route: 058
     Dates: start: 2018
  2. HUMIRA [Suspect]
     Active Substance: ADALIMUMAB
     Indication: PSORIATIC ARTHROPATHY
     Route: 058
     Dates: end: 201809
  3. PROCORALAN [Concomitant]
     Active Substance: IVABRADINE
     Indication: INFARCTION
     Route: 048
     Dates: start: 2001
  4. HUMIRA [Suspect]
     Active Substance: ADALIMUMAB
     Indication: PSORIATIC ARTHROPATHY
     Route: 058
     Dates: start: 20151217
  5. TROMALYT [Concomitant]
     Active Substance: ASPIRIN
     Indication: INFARCTION
     Route: 048
     Dates: start: 2001

REACTIONS (3)
  - Fatigue [Not Recovered/Not Resolved]
  - Infarction [Recovered/Resolved]
  - Anxiety [Recovered/Resolved]

NARRATIVE: CASE EVENT DATE: 2018
